FAERS Safety Report 5372425-1 (Version None)
Quarter: 2007Q2

REPORT INFORMATION
  Report Type: 
  Country: None (occurrence: None)
  Receive Date: 20070615
  Receipt Date: 20070124
  Transmission Date: 20071010
  Serious: Yes (Other)
  Sender: FDA-Public Use
  Company Number: 200710522US

PATIENT
  Sex: Female

DRUGS (3)
  1. LANTUS [Suspect]
     Dosage: INJ
     Route: 042
  2. LANTUS [Suspect]
     Dosage: 8 U SC
     Route: 058
  3. R0SIGLITAZONE MALEATE (AVANDIA) TABLETS [Suspect]
     Dosage: 8 MG QD PO
     Route: 048

REACTIONS (3)
  - DRUG INEFFECTIVE [None]
  - GLYCOSYLATED HAEMOGLOBIN INCREASED [None]
  - HYPOGLYCAEMIA [None]
